FAERS Safety Report 7651287-3 (Version None)
Quarter: 2011Q3

REPORT INFORMATION
  Report Type: 
  Country: None (occurrence: None)
  Receive Date: 20110802
  Receipt Date: 20110726
  Transmission Date: 20111222
  Serious: Yes (Hospitalization)
  Sender: FDA-Public Use
  Company Number: JP-GENZYME-FABR-1001590

PATIENT
  Sex: Male
  Weight: 67 kg

DRUGS (14)
  1. FABRAZYME [Suspect]
     Dosage: 35 MG, Q2W
     Dates: start: 20100707, end: 20101110
  2. FABRAZYME [Suspect]
     Indication: FABRY'S DISEASE
     Dosage: 50 MG, Q2W
     Route: 042
     Dates: start: 20101208
  3. MECOBALAMIN [Concomitant]
     Indication: FABRY'S DISEASE
     Dosage: 1500 MCG, UNK
     Dates: start: 20100910, end: 20101207
  4. SULFADIAZINE [Concomitant]
     Indication: FABRY'S DISEASE
     Dosage: UNK
  5. LIDOCAINE HYDROCHLORIDE [Concomitant]
     Indication: FABRY'S DISEASE
     Dosage: UNK
  6. FABRAZYME [Suspect]
     Dosage: 1.0 MG/KG, Q2W
     Route: 042
     Dates: start: 20060808, end: 20091029
  7. CLOSTRIDIUM BUTYRICUM [Concomitant]
     Indication: FABRY'S DISEASE
     Dosage: UNK
  8. FABRAZYME [Suspect]
     Dosage: 70 MG, Q4W
     Route: 042
     Dates: start: 20091112, end: 20100623
  9. TEPRENONE [Concomitant]
     Indication: FABRY'S DISEASE
     Dosage: UNK
  10. BENZALKONIUM CHLORIDE [Concomitant]
     Indication: FABRY'S DISEASE
     Dosage: UNK
     Dates: start: 20100805
  11. BUCLADESINE SODIUM [Concomitant]
     Indication: FABRY'S DISEASE
     Dosage: UNK
     Dates: start: 20100805
  12. IFENPRODIL TARTRATE [Concomitant]
     Indication: FABRY'S DISEASE
     Dosage: 60 MG, UNK
     Dates: start: 20101124, end: 20101207
  13. LOXOPROFEN SODIUM [Concomitant]
     Indication: FABRY'S DISEASE
     Dosage: UNK
  14. METOCLOPRAMIDE [Concomitant]
     Indication: FABRY'S DISEASE
     Dosage: UNK

REACTIONS (1)
  - DEAFNESS [None]
